FAERS Safety Report 17638180 (Version 1)
Quarter: 2020Q2

REPORT INFORMATION
  Report Type: Spontaneous
  Country: US (occurrence: US)
  Receive Date: 20200406
  Receipt Date: 20200406
  Transmission Date: 20200713
  Serious: Yes (Life-Threatening, Other)
  Sender: FDA-Public Use
  Company Number: None

PATIENT
  Age: 53 Year
  Sex: Female
  Weight: 65.25 kg

DRUGS (1)
  1. MUCUS RELIEF DM [Suspect]
     Active Substance: DEXTROMETHORPHAN HYDROBROMIDE\GUAIFENESIN
     Indication: COUGH
     Dosage: ?          QUANTITY:40 SOFTGEL;?
     Route: 048
     Dates: start: 20200406, end: 20200406

REACTIONS (7)
  - Product use complaint [None]
  - Product size issue [None]
  - Dysphonia [None]
  - Oropharyngeal discomfort [None]
  - Dyspnoea [None]
  - Vomiting [None]
  - Product advertising issue [None]

NARRATIVE: CASE EVENT DATE: 20200406
